FAERS Safety Report 5700965-1 (Version None)
Quarter: 2008Q2

REPORT INFORMATION
  Report Type: 
  Country: None (occurrence: None)
  Receive Date: 20080410
  Receipt Date: 20080403
  Transmission Date: 20081010
  Serious: Yes (Death)
  Sender: FDA-Public Use
  Company Number: FR-WYE-G01351708

PATIENT
  Sex: Male

DRUGS (31)
  1. EFFEXOR [Suspect]
     Route: 048
     Dates: start: 20080101, end: 20080118
  2. HEPARIN SODIUM [Suspect]
     Dosage: UNKNOWN
     Route: 042
     Dates: start: 20071226, end: 20080118
  3. SOLU-MEDROL [Concomitant]
     Indication: ACUTE LYMPHOCYTIC LEUKAEMIA
     Dosage: 100 MG TOTAL DAILY
     Dates: start: 20071226, end: 20080111
  4. IDARUBICIN HCL [Concomitant]
     Indication: ACUTE LYMPHOCYTIC LEUKAEMIA
     Dates: start: 20071231, end: 20080102
  5. IDARUBICIN HCL [Concomitant]
     Dates: start: 20080107, end: 20080107
  6. CYCLOPHOSPHAMIDE [Concomitant]
     Indication: ACUTE LYMPHOCYTIC LEUKAEMIA
     Dates: start: 20080101, end: 20080101
  7. CYCLOPHOSPHAMIDE [Concomitant]
     Dates: start: 20080107, end: 20080107
  8. MESNA [Concomitant]
     Indication: ACUTE LYMPHOCYTIC LEUKAEMIA
     Dosage: UNKNOWN
     Dates: start: 20080101, end: 20080101
  9. MESNA [Concomitant]
     Dosage: UNKNOWN
     Dates: start: 20080107, end: 20080107
  10. VINCRISTINE [Concomitant]
     Indication: ACUTE LYMPHOCYTIC LEUKAEMIA
     Dates: start: 20071231, end: 20071231
  11. VINCRISTINE [Concomitant]
     Dates: start: 20080107, end: 20080107
  12. VINCRISTINE [Concomitant]
     Dates: start: 20080114, end: 20080114
  13. METHOTREXATE [Concomitant]
     Indication: ACUTE LYMPHOCYTIC LEUKAEMIA
     Dosage: UNKNOWN
     Route: 037
     Dates: start: 20080102, end: 20080102
  14. METHOTREXATE [Concomitant]
     Dosage: UNKNOWN
     Route: 037
     Dates: start: 20080110, end: 20080110
  15. METHOTREXATE [Concomitant]
     Dosage: UNKNOWN
     Route: 037
     Dates: start: 20080114, end: 20080114
  16. CYTARABINE [Concomitant]
     Indication: ACUTE LYMPHOCYTIC LEUKAEMIA
     Dosage: UNKNOWN
     Route: 037
     Dates: start: 20080102, end: 20080102
  17. CYTARABINE [Concomitant]
     Dosage: UNKNOWN
     Route: 037
     Dates: start: 20080110, end: 20080110
  18. CYTARABINE [Concomitant]
     Dosage: UNKNOWN
     Route: 037
     Dates: start: 20080114, end: 20080114
  19. OMEPRAZOLE [Concomitant]
     Dosage: UNKNOWN
     Dates: start: 20071226
  20. LASILIX [Concomitant]
     Dosage: UNKNOWN
     Dates: start: 20071226
  21. XANAX [Concomitant]
     Dosage: UNKNOWN
     Dates: start: 20071226
  22. BACTRIM [Concomitant]
     Dosage: UNKNOWN
     Dates: start: 20071226
  23. VALACYCLOVIR [Concomitant]
     Dosage: UNKNOWN
     Dates: start: 20071226
  24. ROCEPHIN [Concomitant]
     Dosage: UNKNOWN
     Dates: start: 20071226
  25. CYANOCOBALAMIN/PYRIDOXINE HYDROCHLORIDE/THIAMINE HYDROCHLORIDE [Concomitant]
     Dosage: UNKNOWN
     Dates: start: 20071226
  26. ALLOPURINOL [Concomitant]
     Dosage: UNKNOWN
     Dates: start: 20071226, end: 20080107
  27. ANAFRANIL [Concomitant]
     Dosage: UNKNOWN
     Dates: start: 20071230, end: 20080106
  28. GENTAMICIN SULFATE [Concomitant]
     Dosage: 80 MG DAILY
     Dates: start: 20071230
  29. VANCOMYCIN [Concomitant]
     Dosage: UNKNOWN
     Route: 042
     Dates: start: 20070109
  30. TRIMEPRAZINE TAB [Concomitant]
     Dosage: UNKNOWN
     Dates: start: 20070112
  31. GLEEVEC [Suspect]
     Indication: ACUTE LYMPHOCYTIC LEUKAEMIA
     Route: 048
     Dates: start: 20071226

REACTIONS (5)
  - ACUTE RESPIRATORY DISTRESS SYNDROME [None]
  - BRONCHOPULMONARY ASPERGILLOSIS [None]
  - HAEMODYNAMIC INSTABILITY [None]
  - PULMONARY ALVEOLAR HAEMORRHAGE [None]
  - VENTRICULAR FIBRILLATION [None]
